FAERS Safety Report 18597458 (Version 1)
Quarter: 2020Q4

REPORT INFORMATION
  Report Type: Spontaneous
  Country: CN (occurrence: CN)
  Receive Date: 20201209
  Receipt Date: 20201209
  Transmission Date: 20210114
  Serious: Yes (Other)
  Sender: FDA-Public Use
  Company Number: CN-EISAI MEDICAL RESEARCH-EC-2020-084864

PATIENT
  Age: 37 Year
  Sex: Male
  Weight: 71 kg

DRUGS (4)
  1. RABEPRAZOLE [Suspect]
     Active Substance: RABEPRAZOLE
     Indication: HELICOBACTER INFECTION
     Route: 048
     Dates: start: 20201120, end: 20201201
  2. BISMUTH POTASSIUM CITRATE [Concomitant]
     Indication: HELICOBACTER INFECTION
     Route: 048
     Dates: start: 20201120, end: 20201201
  3. AMOXICILLIN. [Suspect]
     Active Substance: AMOXICILLIN
     Indication: HELICOBACTER INFECTION
     Route: 048
     Dates: start: 20201120, end: 20201201
  4. CLARITHROMYCIN. [Suspect]
     Active Substance: CLARITHROMYCIN
     Indication: HELICOBACTER INFECTION
     Route: 048
     Dates: start: 20201120, end: 20201201

REACTIONS (1)
  - Drug eruption [Recovering/Resolving]

NARRATIVE: CASE EVENT DATE: 20201130
